FAERS Safety Report 8375290-3 (Version None)
Quarter: 2012Q2

REPORT INFORMATION
  Report Type: 
  Country: None (occurrence: None)
  Receive Date: 20120522
  Receipt Date: 20120514
  Transmission Date: 20120825
  Serious: No
  Sender: FDA-Public Use
  Company Number: US-BIOGENIDEC-2011BI029781

PATIENT
  Age: 50 Year
  Sex: Female

DRUGS (2)
  1. TYSABRI [Suspect]
     Indication: MULTIPLE SCLEROSIS
     Route: 042
     Dates: start: 20110708
  2. AMPYRA [Concomitant]
     Indication: GAIT DISTURBANCE

REACTIONS (7)
  - SPEECH DISORDER [None]
  - MEMORY IMPAIRMENT [None]
  - FATIGUE [None]
  - COORDINATION ABNORMAL [None]
  - GAIT DISTURBANCE [None]
  - BALANCE DISORDER [None]
  - COGNITIVE DISORDER [None]
